FAERS Safety Report 8578646-9 (Version None)
Quarter: 2012Q3

REPORT INFORMATION
  Report Type: 
  Country: None (occurrence: None)
  Receive Date: 20120808
  Receipt Date: 20120731
  Transmission Date: 20120928
  Serious: Yes (Other)
  Sender: FDA-Public Use
  Company Number: US-ABBOTT-12P-163-0948583-00

PATIENT
  Weight: 90.8 kg

DRUGS (1)
  1. HUMIRA [Suspect]
     Indication: PSORIASIS
     Dosage: STARTED WITH LOADING DOSE THEN 1IN 2 WKS
     Dates: start: 20110718, end: 20120130

REACTIONS (5)
  - SMALL CELL LUNG CANCER METASTATIC [None]
  - HEPATIC NEOPLASM MALIGNANT [None]
  - LYMPHOMA [None]
  - DYSPNOEA [None]
  - SUPERIOR VENA CAVA SYNDROME [None]
